FAERS Safety Report 19567397 (Version 1)
Quarter: 2021Q3

REPORT INFORMATION
  Report Type: Spontaneous
  Country: US (occurrence: US)
  Receive Date: 20210715
  Receipt Date: 20210715
  Transmission Date: 20211014
  Serious: No
  Sender: FDA-Public Use
  Company Number: US-GLENMARK PHARMACEUTICALS-2020GMK050542

PATIENT

DRUGS (3)
  1. CALCIPOTRIENE CREAM 0.005% [Suspect]
     Active Substance: CALCIPOTRIENE
     Dosage: 1 GRAM, 3 TIMES EVERY HOUR IN WINTER SEASON
     Route: 061
  2. ZOCOR [Concomitant]
     Active Substance: SIMVASTATIN
     Indication: DIABETES MELLITUS
     Dosage: UNK
     Route: 065
  3. CALCIPOTRIENE CREAM 0.005% [Suspect]
     Active Substance: CALCIPOTRIENE
     Indication: ARTHRITIS
     Dosage: 1 GRAM, 2?4 TIMES A DAY (PRODUCT WAS STARTED ABOUT 5 YEARS BEFORE REPORT)
     Route: 061

REACTIONS (2)
  - Drug effective for unapproved indication [Unknown]
  - Inappropriate schedule of product administration [Unknown]
